FAERS Safety Report 9050437 (Version 4)
Quarter: 2013Q2

REPORT INFORMATION
  Report Type: Spontaneous
  Country: US (occurrence: US)
  Receive Date: 20130205
  Receipt Date: 20130411
  Transmission Date: 20140414
  Serious: No
  Sender: FDA-Public Use
  Company Number: US-PFIZER INC-2013041268

PATIENT
  Age: 75 Year
  Sex: Male
  Weight: 77.1 kg

DRUGS (2)
  1. SPIRONOLACTONE [Suspect]
     Dosage: UNK
  2. HYDROCHLOROTHIAZIDE [Concomitant]
     Dosage: 25 MG, 2X/DAY
     Route: 048

REACTIONS (4)
  - Drug ineffective [Unknown]
  - Drug effect delayed [Unknown]
  - Constipation [Unknown]
  - Rash [Unknown]
